FAERS Safety Report 8852867 (Version 2)
Quarter: 2013Q1

REPORT INFORMATION
  Report Type: Report from Study
  Country: KR (occurrence: KR)
  Receive Date: 20121022
  Receipt Date: 20130321
  Transmission Date: 20140127
  Serious: No
  Sender: FDA-Public Use
  Company Number: KR-OTSUKA-JP-2012-16123

PATIENT
  Age: 69 Year
  Sex: Male

DRUGS (15)
  1. OPC-13013 [Suspect]
     Indication: ANGINA PECTORIS
     Dosage: 100 MG MILLIGRAM(S), DAILY DOSE
     Route: 048
     Dates: start: 20120727, end: 20120804
  2. OPC-13013 [Suspect]
     Indication: PERIPHERAL ARTERIAL OCCLUSIVE DISEASE
     Dosage: 200 MG MILLIGRAM(S), DAILY DOSE
     Route: 048
     Dates: start: 20120804, end: 20120821
  3. LORELCO [Suspect]
     Indication: ANGINA PECTORIS
     Dosage: 500 MG MILLIGRAM(S), DAILY DOSE
     Route: 048
     Dates: start: 20120727, end: 20120821
  4. LORELCO [Suspect]
     Indication: PERIPHERAL ARTERIAL OCCLUSIVE DISEASE
  5. COZAAR PLUS F [Concomitant]
     Indication: HYPERTENSION
     Dosage: 0.5 DF DOSAGE FORM, QD
     Route: 048
     Dates: start: 20100629
  6. ISOSORBIDE [Concomitant]
     Indication: ANGINA PECTORIS
     Dosage: 50 MG MILLIGRAM(S), QD
     Route: 048
     Dates: start: 20110308
  7. PANTOPRAZOLE [Concomitant]
     Dosage: 20 MG MILLIGRAM(S), UNK
     Route: 048
     Dates: start: 20120308
  8. ATORVASTATIN [Concomitant]
     Indication: HYPERLIPIDAEMIA
     Dosage: 10 MG MILLIGRAM(S), QD
     Route: 048
     Dates: start: 20101012
  9. CLOPIDOGREL [Concomitant]
     Indication: ANGINA PECTORIS
     Dosage: 75 MG MILLIGRAM(S), QD
     Route: 048
     Dates: start: 20111020
  10. BISOPROLOL HEMIFUMARATE [Concomitant]
     Indication: HYPERTENSION
     Dosage: 2.5 MG MILLIGRAM(S), QD
     Route: 048
     Dates: start: 20100612
  11. ASPIRIN [Concomitant]
     Indication: ANGINA PECTORIS
     Dosage: 100 MG MILLIGRAM(S), UNK
     Route: 048
     Dates: start: 20120329
  12. ASPIRIN [Concomitant]
     Dosage: 200 MG MILLIGRAM(S), QD
     Route: 048
     Dates: start: 20100612, end: 20120328
  13. GLIMEPIRIDE [Concomitant]
     Indication: DIABETES MELLITUS
     Dosage: 2 MG MILLIGRAM(S), QD
     Route: 048
     Dates: start: 20100612
  14. METFORMIN [Concomitant]
     Indication: DIABETES MELLITUS
     Dosage: UNK
     Route: 048
     Dates: start: 20100614
  15. NITROGLYCERINE [Concomitant]
     Indication: ANGINA PECTORIS
     Dosage: UNK, PRN
     Route: 060
     Dates: start: 20100612

REACTIONS (2)
  - Blood creatine phosphokinase increased [Recovered/Resolved]
  - Haemorrhage subcutaneous [Recovered/Resolved]
